FAERS Safety Report 12248839 (Version 1)
Quarter: 2016Q2

REPORT INFORMATION
  Report Type: Spontaneous
  Country: US (occurrence: None)
  Receive Date: 20160407
  Receipt Date: 20160407
  Transmission Date: 20160815
  Serious: Yes (Other)
  Sender: FDA-Public Use
  Company Number: None

PATIENT
  Age: 59 Year
  Sex: Male
  Weight: 86.4 kg

DRUGS (1)
  1. HARVONI [Suspect]
     Active Substance: LEDIPASVIR\SOFOSBUVIR
     Indication: CHRONIC HEPATITIS C
     Dosage: 90MG/400MG DAILY BY MOUTH
     Route: 048
     Dates: start: 20160205

REACTIONS (5)
  - Feeling abnormal [None]
  - Headache [None]
  - Depression [None]
  - Irritability [None]
  - Disorientation [None]

NARRATIVE: CASE EVENT DATE: 20160219
